FAERS Safety Report 20047587 (Version 5)
Quarter: 2022Q1

REPORT INFORMATION
  Report Type: Report from Study
  Country: US (occurrence: US)
  Receive Date: 20211109
  Receipt Date: 20220103
  Transmission Date: 20220424
  Serious: No
  Sender: FDA-Public Use
  Company Number: US-NOVARTISTESTPH-NVSC2021US252004

PATIENT
  Age: 62 Year
  Sex: Female

DRUGS (4)
  1. ENTRESTO [Suspect]
     Active Substance: SACUBITRIL\VALSARTAN
     Indication: Product used for unknown indication
     Dosage: 2 DF, BID (49/51MG)
     Route: 048
     Dates: start: 202108
  2. FARXIGA [Suspect]
     Active Substance: DAPAGLIFLOZIN PROPANEDIOL
     Indication: Product used for unknown indication
     Dosage: UNK
     Route: 065
  3. METOPROLOL [Suspect]
     Active Substance: METOPROLOL
     Indication: Product used for unknown indication
     Dosage: UNK
     Route: 065
  4. VELTASSA [Concomitant]
     Active Substance: PATIROMER
     Indication: Product used for unknown indication
     Dosage: UNK
     Route: 065

REACTIONS (18)
  - Therapeutic response unexpected [Unknown]
  - Respiratory syncytial virus infection [Recovered/Resolved]
  - Throat clearing [Recovered/Resolved]
  - Illness [Recovered/Resolved]
  - Dyspnoea [Recovered/Resolved]
  - Blood potassium increased [Unknown]
  - Ejection fraction abnormal [Unknown]
  - COVID-19 [Recovered/Resolved]
  - Gait disturbance [Unknown]
  - Hypotension [Unknown]
  - Hypokinesia [Unknown]
  - Blood pressure increased [Unknown]
  - Palpitations [Recovering/Resolving]
  - Ventricular extrasystoles [Recovering/Resolving]
  - Dizziness [Recovering/Resolving]
  - Peripheral coldness [Unknown]
  - Pain [Unknown]
  - Fatigue [Unknown]

NARRATIVE: CASE EVENT DATE: 20210801
